FAERS Safety Report 13738855 (Version 1)
Quarter: 2017Q3

REPORT INFORMATION
  Report Type: Not Available
  Country: DE (occurrence: DE)
  Receive Date: 20170710
  Receipt Date: 20170710
  Transmission Date: 20171127
  Serious: Yes (Other)
  Sender: FDA-Public Use
  Company Number: DE-SYNTHON BV-NL01PV17_44163

PATIENT
  Age: 67 Year
  Sex: Male
  Weight: 90 kg

DRUGS (1)
  1. TAMSUBLOCK [Suspect]
     Active Substance: TAMSULOSIN HYDROCHLORIDE
     Indication: URINARY RETENTION
     Dosage: 1 DF, DAILY
     Route: 048
     Dates: start: 20170202, end: 20170204

REACTIONS (10)
  - Circulatory collapse [Recovered/Resolved]
  - Immune system disorder [Recovered/Resolved]
  - Nasopharyngitis [Recovered/Resolved]
  - Dry throat [Recovered/Resolved]
  - Paraesthesia [Recovered/Resolved]
  - Bronchitis [Recovered/Resolved]
  - Rosacea [Not Recovered/Not Resolved]
  - Nasal dryness [Recovered/Resolved]
  - Cough [Recovered/Resolved]
  - Facial pain [Recovered/Resolved]

NARRATIVE: CASE EVENT DATE: 20170203
